FAERS Safety Report 6385895-7 (Version None)
Quarter: 2009Q4

REPORT INFORMATION
  Report Type: 
  Country: None (occurrence: None)
  Receive Date: 20091002
  Receipt Date: 20090114
  Transmission Date: 20100525
  Serious: No
  Sender: FDA-Public Use
  Company Number: US-ASTRAZENECA-2009UW01200

PATIENT
  Age: 52 Year
  Sex: Female

DRUGS (6)
  1. ARIMIDEX [Suspect]
     Indication: BREAST CANCER FEMALE
     Route: 048
  2. ALLOPURINOL [Concomitant]
  3. ZOLOFT [Concomitant]
  4. LEVOXYL [Concomitant]
  5. REQUIP [Concomitant]
  6. NAPROXEN [Concomitant]

REACTIONS (4)
  - ARTHRITIS [None]
  - ARTHROPATHY [None]
  - RESTLESS LEGS SYNDROME [None]
  - WEIGHT INCREASED [None]
